FAERS Safety Report 24120370 (Version 1)
Quarter: 2024Q3

REPORT INFORMATION
  Report Type: Spontaneous
  Country: US (occurrence: US)
  Receive Date: 20240722
  Receipt Date: 20240722
  Transmission Date: 20241016
  Serious: Yes (Other)
  Sender: BAYER
  Company Number: US-BAYER-2024A104056

PATIENT
  Age: 37 Year
  Sex: Male

DRUGS (1)
  1. KOVALTRY [Suspect]
     Active Substance: ANTIHEMOPHILIC FACTOR, HUMAN RECOMBINANT
     Dosage: KOVALTRY 801/3036 UN
     Route: 042

REACTIONS (2)
  - Joint injury [None]
  - Traumatic haemorrhage [None]

NARRATIVE: CASE EVENT DATE: 20240707
